FAERS Safety Report 12504433 (Version 1)
Quarter: 2016Q2

REPORT INFORMATION
  Report Type: Spontaneous
  Country: IL (occurrence: IL)
  Receive Date: 20160628
  Receipt Date: 20160628
  Transmission Date: 20160815
  Serious: Yes (Other)
  Sender: FDA-Public Use
  Company Number: IL-JNJFOC-20160605200

PATIENT
  Age: 69 Year
  Sex: Male

DRUGS (1)
  1. STELARA [Suspect]
     Active Substance: USTEKINUMAB
     Indication: PSORIASIS
     Route: 058
     Dates: start: 201605, end: 2016

REACTIONS (6)
  - Myalgia [Not Recovered/Not Resolved]
  - Influenza like illness [Recovering/Resolving]
  - Arthralgia [Not Recovered/Not Resolved]
  - Paralysis [Not Recovered/Not Resolved]
  - C-reactive protein increased [Unknown]
  - Pyrexia [Not Recovered/Not Resolved]

NARRATIVE: CASE EVENT DATE: 2016
